FAERS Safety Report 18242471 (Version 2)
Quarter: 2021Q2

REPORT INFORMATION
  Report Type: Report from Study
  Country: US (occurrence: US)
  Receive Date: 20200908
  Receipt Date: 20210617
  Transmission Date: 20210717
  Serious: Yes (Congenital Anomaly, Other)
  Sender: FDA-Public Use
  Company Number: US-PFIZER INC-2020340191

PATIENT
  Sex: Female
  Weight: 2 kg

DRUGS (3)
  1. COMBIVIR [Suspect]
     Active Substance: LAMIVUDINE\ZIDOVUDINE
     Dosage: UNK
     Route: 064
  2. LOPINAVIR / RITONAVIR MYLAN [Suspect]
     Active Substance: LOPINAVIR\RITONAVIR
     Dosage: UNK
     Route: 064
     Dates: start: 20050526
  3. VIRACEPT [Suspect]
     Active Substance: NELFINAVIR MESYLATE
     Dosage: 2500 MG, DAILY
     Route: 064
     Dates: end: 20050525

REACTIONS (6)
  - Pulmonary artery stenosis congenital [Unknown]
  - Foetal exposure during pregnancy [Unknown]
  - Ventricular septal defect acquired [Unknown]
  - Meningomyelocele [Unknown]
  - Arnold-Chiari malformation [Unknown]
  - Acquired cardiac septal defect [Unknown]
